FAERS Safety Report 12418097 (Version 4)
Quarter: 2020Q3

REPORT INFORMATION
  Report Type: Spontaneous
  Country: US (occurrence: US)
  Receive Date: 20160531
  Receipt Date: 20200904
  Transmission Date: 20201102
  Serious: No
  Sender: FDA-Public Use
  Company Number: US-BIOGEN-2016BI00236390

PATIENT
  Age: 55 Year
  Sex: Female

DRUGS (1)
  1. TYSABRI [Suspect]
     Active Substance: NATALIZUMAB
     Indication: MULTIPLE SCLEROSIS
     Route: 065
     Dates: start: 20150202

REACTIONS (12)
  - Confusional state [Unknown]
  - Back disorder [Unknown]
  - Dizziness [Not Recovered/Not Resolved]
  - Fatigue [Unknown]
  - Hyperhidrosis [Unknown]
  - Memory impairment [Unknown]
  - Stress [Unknown]
  - Joint injury [Unknown]
  - Pain [Unknown]
  - Abdominal discomfort [Unknown]
  - Hypoglycaemia [Unknown]
  - Nerve compression [Unknown]

NARRATIVE: CASE EVENT DATE: 20160504
